FAERS Safety Report 5307541-3 (Version None)
Quarter: 2007Q2

REPORT INFORMATION
  Report Type: 
  Country: None (occurrence: None)
  Receive Date: 20070425
  Receipt Date: 20070417
  Transmission Date: 20071010
  Serious: Yes (Other)
  Sender: FDA-Public Use
  Company Number: JP-PFIZER INC-2007031738

PATIENT
  Age: 73 Year
  Sex: Male

DRUGS (2)
  1. XALATAN [Suspect]
     Indication: GLAUCOMA
     Dosage: DAILY DOSE:1DROP
     Route: 031
     Dates: end: 20070413
  2. TIMOPTIC [Suspect]
     Indication: GLAUCOMA
     Dosage: DAILY DOSE:2DROP
     Route: 031
     Dates: end: 20061226

REACTIONS (2)
  - CORNEAL DISORDER [None]
  - VISUAL FIELD DEFECT [None]
